FAERS Safety Report 7986090-8 (Version None)
Quarter: 2011Q4

REPORT INFORMATION
  Report Type: 
  Country: None (occurrence: None)
  Receive Date: 20111216
  Receipt Date: 20110622
  Transmission Date: 20120403
  Serious: No
  Sender: FDA-Public Use
  Company Number: US-BRISTOL-MYERS SQUIBB COMPANY-15850068

PATIENT
  Sex: Female

DRUGS (4)
  1. ABILIFY [Suspect]
     Indication: PANIC ATTACK
  2. ABILIFY [Suspect]
     Indication: DEPRESSION
  3. CELEXA [Suspect]
     Indication: PANIC ATTACK
  4. CELEXA [Suspect]
     Indication: DEPRESSION

REACTIONS (1)
  - PANIC ATTACK [None]
